FAERS Safety Report 11370533 (Version 2)
Quarter: 2015Q3

REPORT INFORMATION
  Report Type: Spontaneous
  Country: US (occurrence: US)
  Receive Date: 20150812
  Receipt Date: 20150922
  Transmission Date: 20151125
  Serious: Yes (Hospitalization)
  Sender: FDA-Public Use
  Company Number: US-BIOGENIDEC-2015BI106211

PATIENT
  Age: 51 Year
  Sex: Female
  Weight: 55 kg

DRUGS (1)
  1. TYSABRI [Suspect]
     Active Substance: NATALIZUMAB
     Indication: MULTIPLE SCLEROSIS
     Route: 042
     Dates: start: 20110707

REACTIONS (6)
  - Cervix carcinoma [Recovered/Resolved]
  - Asthenia [Not Recovered/Not Resolved]
  - Multiple sclerosis [Not Recovered/Not Resolved]
  - Memory impairment [Not Recovered/Not Resolved]
  - Central nervous system lesion [Not Recovered/Not Resolved]
  - Pain in extremity [Not Recovered/Not Resolved]

NARRATIVE: CASE EVENT DATE: 20150728
